FAERS Safety Report 17105395 (Version 1)
Quarter: 2019Q4

REPORT INFORMATION
  Report Type: Report from Study
  Country: GR (occurrence: GR)
  Receive Date: 20191203
  Receipt Date: 20191203
  Transmission Date: 20200122
  Serious: Yes (Hospitalization)
  Sender: FDA-Public Use
  Company Number: GR-TEVA-2019-GR-1147308

PATIENT
  Age: 31 Year
  Sex: Female

DRUGS (2)
  1. COPAXONE [Suspect]
     Active Substance: GLATIRAMER ACETATE
     Indication: MULTIPLE SCLEROSIS
     Dosage: 40 MG/ML
     Route: 058
     Dates: start: 20180523, end: 20191108
  2. THYROXINE [Concomitant]
     Active Substance: LEVOTHYROXINE

REACTIONS (6)
  - Hypersensitivity [Recovered/Resolved]
  - Rash [Recovered/Resolved]
  - Palpitations [Recovered/Resolved]
  - Dyspnoea [Recovered/Resolved]
  - Pruritus [Recovered/Resolved]
  - Swelling face [Recovered/Resolved]

NARRATIVE: CASE EVENT DATE: 20191108
